FAERS Safety Report 4385414-0 (Version None)
Quarter: 2004Q2

REPORT INFORMATION
  Report Type: 
  Country: None (occurrence: None)
  Receive Date: 20040625
  Receipt Date: 20040625
  Transmission Date: 20050107
  Serious: Yes (Hospitalization)
  Sender: FDA-Public Use
  Company Number: None

PATIENT

DRUGS (1)
  1. LISINOPRIL [Suspect]
     Dosage: 10 MG PO QD
     Route: 048

REACTIONS (4)
  - ANGIONEUROTIC OEDEMA [None]
  - BLOOD CREATININE INCREASED [None]
  - HYPONATRAEMIA [None]
  - RENAL FAILURE ACUTE [None]
